FAERS Safety Report 14378898 (Version 8)
Quarter: 2022Q3

REPORT INFORMATION
  Report Type: Spontaneous
  Country: FR (occurrence: FR)
  Receive Date: 20180112
  Receipt Date: 20220926
  Transmission Date: 20221026
  Serious: Yes (Other)
  Sender: FDA-Public Use
  Company Number: FR-AUROBINDO-AUR-APL-2018-001720

PATIENT
  Age: 50 Year
  Sex: Male
  Weight: 52 kg

DRUGS (30)
  1. DOXORUBICIN [Suspect]
     Active Substance: DOXORUBICIN
     Indication: Non-Hodgkin^s lymphoma stage IV
     Dosage: UNK
     Route: 065
  2. PREDNISONE [Suspect]
     Active Substance: PREDNISONE
     Indication: Non-Hodgkin^s lymphoma stage IV
     Dosage: R-CHOP CHEMOTHERAPY
     Route: 065
  3. PREDNISOLONE [Suspect]
     Active Substance: PREDNISOLONE
     Indication: Non-Hodgkin^s lymphoma
     Dosage: UNK
     Route: 065
  4. PREDNISOLONE [Suspect]
     Active Substance: PREDNISOLONE
     Dosage: R-CHOP CHEMOTHERAPY
     Route: 065
  5. PREDNISOLONE [Suspect]
     Active Substance: PREDNISOLONE
     Dosage: DOSAGE FORM: UNSPECIFIED
     Route: 065
  6. ISENTRESS [Suspect]
     Active Substance: RALTEGRAVIR POTASSIUM
     Indication: Product used for unknown indication
     Dosage: UNK
     Route: 048
     Dates: start: 2016, end: 20171009
  7. ISENTRESS [Suspect]
     Active Substance: RALTEGRAVIR POTASSIUM
     Indication: Product used for unknown indication
     Dosage: DOSAGE FORM: GRANULES
     Route: 065
     Dates: start: 20171106
  8. ISENTRESS [Suspect]
     Active Substance: RALTEGRAVIR POTASSIUM
     Indication: Product used for unknown indication
     Route: 048
     Dates: start: 2016, end: 20171009
  9. ISENTRESS [Suspect]
     Active Substance: RALTEGRAVIR POTASSIUM
     Dosage: DOSAGE FORM: GRANULES
     Route: 065
     Dates: start: 20171106
  10. TRUVADA [Suspect]
     Active Substance: EMTRICITABINE\TENOFOVIR DISOPROXIL FUMARATE
     Indication: Product used for unknown indication
     Dosage: UNK
     Route: 048
     Dates: start: 2016, end: 20171009
  11. VINCRISTINE [Suspect]
     Active Substance: VINCRISTINE
     Indication: Non-Hodgkin^s lymphoma stage IV
     Dosage: R-CHOP CHEMOTHERAPY
     Route: 065
  12. VINCRISTINE [Suspect]
     Active Substance: VINCRISTINE
     Dosage: R-CHOP CHEMOTHERAPY
     Route: 065
  13. CYCLOPHOSPHAMIDE [Suspect]
     Active Substance: CYCLOPHOSPHAMIDE
     Indication: Non-Hodgkin^s lymphoma stage IV
     Dosage: 1000 MILLIGRAM
     Route: 065
  14. RITUXIMAB [Suspect]
     Active Substance: RITUXIMAB
     Indication: Non-Hodgkin^s lymphoma stage IV
     Dosage: R-CHOP CHEMOTHERAPY
     Route: 065
  15. RITUXIMAB [Suspect]
     Active Substance: RITUXIMAB
     Dosage: DOSAGE FORM: UNSPECIFIED
     Route: 065
  16. RITUXIMAB [Suspect]
     Active Substance: RITUXIMAB
     Dosage: R-CHOP CHEMOTHERAPY
     Route: 065
  17. CYTARABINE [Suspect]
     Active Substance: CYTARABINE
     Indication: Product used for unknown indication
     Dosage: UNK
     Route: 065
  18. CYTARABINE [Suspect]
     Active Substance: CYTARABINE
     Dosage: UNK
     Route: 065
  19. ISENTRESS [Suspect]
     Active Substance: RALTEGRAVIR POTASSIUM
     Indication: Product used for unknown indication
     Dosage: UNK
     Route: 048
  20. CISPLATIN [Suspect]
     Active Substance: CISPLATIN
     Indication: Product used for unknown indication
     Dosage: DOSAGE FORM: UNSPECIFIED
     Route: 065
  21. CISPLATIN [Suspect]
     Active Substance: CISPLATIN
     Dosage: DOSAGE FORM: UNSPECIFIED
     Route: 065
  22. MABTHERA [Suspect]
     Active Substance: RITUXIMAB
     Indication: Non-Hodgkin^s lymphoma
     Dosage: DOSAGE FORM: UNSPECIFIED
     Route: 065
  23. MABTHERA [Suspect]
     Active Substance: RITUXIMAB
     Dosage: DOSAGE FORM: UNSPECIFIED
  24. VIREAD [Suspect]
     Active Substance: TENOFOVIR DISOPROXIL FUMARATE
     Indication: HIV infection
     Dosage: DOSAGE FORM: SOLUTIONUNK
     Route: 065
     Dates: start: 20171106
  25. DEXAMETHASONE [Concomitant]
     Active Substance: DEXAMETHASONE
     Indication: Product used for unknown indication
     Dosage: UNK
     Route: 065
  26. DEXAMETHASONE [Concomitant]
     Active Substance: DEXAMETHASONE
     Dosage: UNK
     Route: 065
  27. BACTRIM [Concomitant]
     Active Substance: SULFAMETHOXAZOLE\TRIMETHOPRIM
     Indication: Product used for unknown indication
     Dosage: DOSAGE FORM: UNSPECIFIED
     Route: 065
     Dates: start: 2016
  28. BACTRIM [Concomitant]
     Active Substance: SULFAMETHOXAZOLE\TRIMETHOPRIM
     Dosage: DOSAGE FORM: UNSPECIFIED
     Route: 065
     Dates: start: 20160101
  29. EMTRIVA [Concomitant]
     Active Substance: EMTRICITABINE
     Indication: Product used for unknown indication
     Dosage: DOSAGE FORM: SOLUTION
     Route: 065
     Dates: start: 20171106
  30. TENOFOVIR DISOPROXIL FUMARATE [Suspect]
     Active Substance: TENOFOVIR DISOPROXIL FUMARATE
     Indication: HIV infection
     Dosage: UNK
     Route: 065

REACTIONS (11)
  - Neoplasm progression [Unknown]
  - Pathogen resistance [Unknown]
  - Oesophageal carcinoma [Unknown]
  - Dysphagia [Unknown]
  - Off label use [Unknown]
  - Treatment failure [Unknown]
  - Product use in unapproved indication [Unknown]
  - Viral load increased [Recovered/Resolved]
  - Blood HIV RNA increased [Recovering/Resolving]
  - Virologic failure [Unknown]
  - Drug ineffective [Unknown]

NARRATIVE: CASE EVENT DATE: 20171106
